FAERS Safety Report 24555190 (Version 1)
Quarter: 2024Q4

REPORT INFORMATION
  Report Type: Report from Study
  Country: US (occurrence: US)
  Receive Date: 20241028
  Receipt Date: 20241028
  Transmission Date: 20250115
  Serious: Yes (Hospitalization)
  Sender: ABBVIE
  Company Number: US-ABBVIE-5974033

PATIENT
  Sex: Female

DRUGS (1)
  1. SKYRIZI [Suspect]
     Active Substance: RISANKIZUMAB-RZAA
     Indication: Crohn^s disease
     Route: 058
     Dates: start: 20240830

REACTIONS (4)
  - Diverticulitis [Unknown]
  - COVID-19 [Unknown]
  - Constipation [Unknown]
  - Influenza [Unknown]

NARRATIVE: CASE EVENT DATE: 20240101
